FAERS Safety Report 9604138 (Version 3)
Quarter: 2016Q2

REPORT INFORMATION
  Report Type: Report from Study
  Country: US (occurrence: US)
  Receive Date: 20131008
  Receipt Date: 20160608
  Transmission Date: 20160815
  Serious: Yes (Hospitalization)
  Sender: FDA-Public Use
  Company Number: US-ROCHE-1283173

PATIENT
  Age: 56 Year
  Sex: Female

DRUGS (8)
  1. LIDOCAINE. [Concomitant]
     Active Substance: LIDOCAINE
     Dosage: TOPICAL ANASTHETIC
     Route: 047
  2. BETADINE [Concomitant]
     Active Substance: POVIDONE-IODINE
     Route: 057
  3. LUCENTIS [Suspect]
     Active Substance: RANIBIZUMAB
     Indication: DIABETIC EYE DISEASE
  4. LUCENTIS [Suspect]
     Active Substance: RANIBIZUMAB
     Indication: DIABETIC RETINOPATHY
     Dosage: MONTHLY, RIGHT EYE
     Route: 050
     Dates: start: 20130208
  5. LUCENTIS [Suspect]
     Active Substance: RANIBIZUMAB
     Indication: DIABETIC RETINAL OEDEMA
     Route: 050
     Dates: start: 20130925
  6. LUCENTIS [Suspect]
     Active Substance: RANIBIZUMAB
     Indication: DIABETIC RETINOPATHY
     Dosage: RIGHT EYE
     Route: 050
     Dates: start: 20130228
  7. ALCAINE [Concomitant]
     Active Substance: PROPARACAINE HYDROCHLORIDE
     Dosage: TOPICAL ANASTHETIC
     Route: 065
  8. BETADINE [Concomitant]
     Active Substance: POVIDONE-IODINE
     Route: 057

REACTIONS (3)
  - Foot operation [Unknown]
  - Blood glucose increased [Unknown]
  - Visual acuity reduced [Not Recovered/Not Resolved]

NARRATIVE: CASE EVENT DATE: 201309
